FAERS Safety Report 14361882 (Version 1)
Quarter: 2018Q1

REPORT INFORMATION
  Report Type: Spontaneous
  Country: FR (occurrence: FR)
  Receive Date: 20180108
  Receipt Date: 20180108
  Transmission Date: 20180509
  Serious: Yes (Other)
  Sender: FDA-Public Use
  Company Number: FR-ASTRAZENECA-2018SE00663

PATIENT
  Age: 62 Year
  Sex: Female
  Weight: 76 kg

DRUGS (1)
  1. CRESTOR [Suspect]
     Active Substance: ROSUVASTATIN CALCIUM
     Indication: HYPERCHOLESTEROLAEMIA
     Route: 048
     Dates: start: 20170601, end: 20170930

REACTIONS (5)
  - Fatigue [Recovered/Resolved]
  - Myalgia [Recovered/Resolved]
  - Vertigo [Recovered/Resolved]
  - Depression [Recovered/Resolved]
  - Fall [Recovered/Resolved]

NARRATIVE: CASE EVENT DATE: 201709
